FAERS Safety Report 8043288-0 (Version None)
Quarter: 2012Q1

REPORT INFORMATION
  Report Type: 
  Country: None (occurrence: None)
  Receive Date: 20120112
  Receipt Date: 20120105
  Transmission Date: 20120608
  Serious: Yes (Death, Hospitalization)
  Sender: FDA-Public Use
  Company Number: US-GLAXOSMITHKLINE-A0918380A

PATIENT
  Age: 78 Year
  Sex: Female
  Weight: 87.7 kg

DRUGS (16)
  1. LANOXIN [Concomitant]
  2. MULTI-VITAMIN [Concomitant]
  3. CALAN [Concomitant]
  4. FLEXERIL [Concomitant]
  5. AVANDIA [Suspect]
     Indication: DIABETES MELLITUS
     Dosage: 4MG PER DAY
     Route: 048
     Dates: start: 20000414
  6. ALPRAZOLAM [Concomitant]
  7. COUMADIN [Concomitant]
  8. AVAPRO [Concomitant]
  9. VESICARE [Concomitant]
  10. LASIX [Concomitant]
  11. FLONASE [Concomitant]
  12. NEURONTIN [Concomitant]
  13. POTASSIUM CHLORIDE [Concomitant]
  14. VITAMIN E [Concomitant]
  15. QUININE SULFATE [Concomitant]
  16. LORTAB [Concomitant]

REACTIONS (2)
  - ATRIAL FIBRILLATION [None]
  - CEREBROVASCULAR ACCIDENT [None]
